FAERS Safety Report 20179590 (Version 1)
Quarter: 2021Q4

REPORT INFORMATION
  Report Type: Spontaneous
  Country: FR (occurrence: FR)
  Receive Date: 20211214
  Receipt Date: 20211214
  Transmission Date: 20220303
  Serious: Yes (Hospitalization)
  Sender: FDA-Public Use
  Company Number: FR-SA-SAC20211208001109

PATIENT
  Age: 77 Year
  Sex: Female

DRUGS (1)
  1. RIFADIN [Suspect]
     Active Substance: RIFAMPIN
     Dosage: 300 MG

REACTIONS (5)
  - Spinal disorder [Unknown]
  - Abdominal pain [Unknown]
  - Cough [Unknown]
  - Sputum discoloured [Unknown]
  - Diarrhoea [Unknown]
